FAERS Safety Report 10249636 (Version 1)
Quarter: 2014Q2

REPORT INFORMATION
  Report Type: Spontaneous
  Country: US (occurrence: US)
  Receive Date: 20140620
  Receipt Date: 20140620
  Transmission Date: 20141212
  Serious: No
  Sender: FDA-Public Use
  Company Number: US-PFIZER INC-2014169162

PATIENT
  Age: 56 Year
  Sex: Female
  Weight: 102 kg

DRUGS (2)
  1. ATORVASTATIN CALCIUM [Suspect]
     Indication: BLOOD CHOLESTEROL INCREASED
     Dosage: 200 MG, 1X/DAY
     Route: 048
     Dates: start: 2013, end: 2013
  2. PREVACID [Concomitant]
     Dosage: UNK

REACTIONS (1)
  - Drug ineffective [Unknown]
